FAERS Safety Report 14095779 (Version 1)
Quarter: 2017Q4

REPORT INFORMATION
  Report Type: Spontaneous
  Country: JP (occurrence: JP)
  Receive Date: 20171016
  Receipt Date: 20171016
  Transmission Date: 20180321
  Serious: Yes (Disabling)
  Sender: FDA-Public Use
  Company Number: JP-BRISTOL-MYERS SQUIBB COMPANY-12135984

PATIENT
  Age: 51 Year
  Sex: Male

DRUGS (1)
  1. PARAPLATIN [Suspect]
     Active Substance: CARBOPLATIN
     Indication: GLIOBLASTOMA
     Dosage: 250 MG ON 8-DEC-1999
     Route: 013
     Dates: start: 19991007, end: 19991007

REACTIONS (1)
  - Paresis [Recovered/Resolved with Sequelae]

NARRATIVE: CASE EVENT DATE: 19991007
